FAERS Safety Report 6287135-6 (Version None)
Quarter: 2009Q3

REPORT INFORMATION
  Report Type: 
  Country: None (occurrence: None)
  Receive Date: 20090728
  Receipt Date: 20090723
  Transmission Date: 20100115
  Serious: Yes (Hospitalization, Other)
  Sender: FDA-Public Use
  Company Number: JP-ABBOTT-09P-087-0585359-00

PATIENT
  Sex: Male

DRUGS (2)
  1. LOPINAVIR AND RITONAVIR [Suspect]
     Indication: HIV INFECTION
     Route: 048
  2. TRUVADA [Suspect]
     Indication: HIV INFECTION
     Dosage: NOT REPORTED
     Route: 048

REACTIONS (4)
  - ADRENAL INSUFFICIENCY [None]
  - ADRENALITIS [None]
  - CYTOMEGALOVIRUS INFECTION [None]
  - IMMUNE RECONSTITUTION SYNDROME [None]
